FAERS Safety Report 7831033-0 (Version None)
Quarter: 2011Q4

REPORT INFORMATION
  Report Type: 
  Country: None (occurrence: None)
  Receive Date: 20111021
  Receipt Date: 20111010
  Transmission Date: 20120403
  Serious: Yes (Hospitalization, Other)
  Sender: FDA-Public Use
  Company Number: PHHO2011US09437

PATIENT
  Sex: Male

DRUGS (12)
  1. NEORAL [Suspect]
     Indication: RENAL TRANSPLANT
     Dosage: 175 MG, QD
     Dates: start: 20110218
  2. MYCOPHENOLATE MOFETIL [Concomitant]
     Dosage: UNK
     Dates: start: 20070723
  3. CLONIDINE HYDROCHLORIDE [Concomitant]
  4. COUMADIN [Concomitant]
  5. LIPITOR [Concomitant]
  6. PERCOCET [Concomitant]
     Indication: HYPERTENSION
  7. PREDNISONE [Concomitant]
     Dosage: UNK
     Dates: start: 20090723
  8. KLOR-CON [Concomitant]
  9. METOPROLOL SUCCINATE [Concomitant]
  10. ISOSORBIDE MONONITRATE [Concomitant]
  11. HYDRALAZINE HYDROCHLORIDE [Concomitant]
  12. FUROSEMIDE [Concomitant]
     Dosage: UNK
     Dates: start: 20110711

REACTIONS (21)
  - PNEUMONIA [None]
  - CHEST PAIN [None]
  - LOSS OF CONTROL OF LEGS [None]
  - OEDEMA MOUTH [None]
  - HAEMATURIA [None]
  - DEVICE PSYCHOGENIC COMPLICATION [None]
  - VASCULAR CALCIFICATION [None]
  - CEREBELLAR INFARCTION [None]
  - ISCHAEMIC STROKE [None]
  - VASCULITIS [None]
  - CUSHINGOID [None]
  - NEUROPATHY PERIPHERAL [None]
  - CARDIAC FAILURE CONGESTIVE [None]
  - FALL [None]
  - HAEMOGLOBIN DECREASED [None]
  - HAEMATURIA TRAUMATIC [None]
  - ARTHRALGIA [None]
  - TRANSIENT ISCHAEMIC ATTACK [None]
  - CEREBRAL SMALL VESSEL ISCHAEMIC DISEASE [None]
  - MUSCLE HAEMORRHAGE [None]
  - MUSCULAR WEAKNESS [None]
